FAERS Safety Report 12110946 (Version 1)
Quarter: 2016Q1

REPORT INFORMATION
  Report Type: Spontaneous
  Country: CA (occurrence: CA)
  Receive Date: 20160224
  Receipt Date: 20160224
  Transmission Date: 20160526
  Serious: Yes (Other)
  Sender: FDA-Public Use
  Company Number: CA-WATSON-2016-03428

PATIENT
  Age: 87 Year
  Sex: Male
  Weight: 82 kg

DRUGS (1)
  1. TRELSTAR [Suspect]
     Active Substance: TRIPTORELIN PAMOATE
     Indication: PROSTATE CANCER
     Dosage: 11.25 MG, 1 EVERY 3 MONTHS
     Route: 030

REACTIONS (1)
  - Chondrocalcinosis pyrophosphate [Unknown]
